FAERS Safety Report 19488994 (Version 2)
Quarter: 2021Q3

REPORT INFORMATION
  Report Type: Report from Study
  Country: None (occurrence: US)
  Receive Date: 20210702
  Receipt Date: 20210731
  Transmission Date: 20211014
  Serious: Yes (Other)
  Sender: FDA-Public Use
  Company Number: US-ABBVIE-21K-163-3927582-00

PATIENT
  Age: 53 Year
  Sex: Female

DRUGS (2)
  1. HUMIRA [Suspect]
     Active Substance: ADALIMUMAB
     Indication: PRODUCT USED FOR UNKNOWN INDICATION
     Dosage: CITRATE FREE
     Route: 058
     Dates: start: 2021, end: 2021
  2. HUMIRA [Suspect]
     Active Substance: ADALIMUMAB
     Dosage: CITRATE FREE
     Route: 058
     Dates: start: 202105

REACTIONS (12)
  - Headache [Unknown]
  - Injection site bruising [Unknown]
  - Arthralgia [Not Recovered/Not Resolved]
  - Sleep disorder [Unknown]
  - Alopecia [Not Recovered/Not Resolved]
  - Blindness [Not Recovered/Not Resolved]
  - Fear [Unknown]
  - Confusional state [Unknown]
  - Abdominal distension [Unknown]
  - Immune system disorder [Unknown]
  - Tinnitus [Recovered/Resolved]
  - Optic atrophy [Unknown]

NARRATIVE: CASE EVENT DATE: 2021
